FAERS Safety Report 14187511 (Version 2)
Quarter: 2018Q2

REPORT INFORMATION
  Report Type: Spontaneous
  Country: US (occurrence: US)
  Receive Date: 20171114
  Receipt Date: 20180514
  Transmission Date: 20180711
  Serious: No
  Sender: FDA-Public Use
  Company Number: US-ASTRAZENECA-2017SF12531

PATIENT
  Age: 66 Year
  Sex: Female
  Weight: 43.1 kg

DRUGS (7)
  1. METOPROLOL TARTRATE. [Suspect]
     Active Substance: METOPROLOL TARTRATE
     Indication: CARDIAC FLUTTER
     Route: 048
     Dates: start: 2013
  2. SEREVENT DISKUS [Concomitant]
     Active Substance: SALMETEROL XINAFOATE
     Indication: CHRONIC OBSTRUCTIVE PULMONARY DISEASE
     Dosage: 50.0UG AS REQUIRED
     Route: 055
     Dates: start: 2016
  3. DESLORATADINE. [Concomitant]
     Active Substance: DESLORATADINE
     Indication: MULTIPLE ALLERGIES
     Route: 048
     Dates: start: 2017
  4. SEREVENT DISKUS [Concomitant]
     Active Substance: SALMETEROL XINAFOATE
     Indication: PROPHYLAXIS
     Dosage: 50.0UG AS REQUIRED
     Route: 055
     Dates: start: 2016
  5. TUDORZA PRESSAIR [Suspect]
     Active Substance: ACLIDINIUM BROMIDE
     Indication: CHRONIC OBSTRUCTIVE PULMONARY DISEASE
     Route: 055
     Dates: start: 2013
  6. METOPROLOL TARTRATE. [Suspect]
     Active Substance: METOPROLOL TARTRATE
     Indication: HEART RATE IRREGULAR
     Route: 048
     Dates: start: 2013
  7. BABY ASPIRIN [Concomitant]
     Active Substance: ASPIRIN
     Indication: PROPHYLAXIS
     Route: 048
     Dates: start: 2013

REACTIONS (9)
  - Underdose [Recovered/Resolved]
  - Device failure [Unknown]
  - Nasal congestion [Recovered/Resolved]
  - Seasonal allergy [Not Recovered/Not Resolved]
  - Product use issue [Recovered/Resolved]
  - Intentional product misuse [Recovered/Resolved]
  - Device issue [Unknown]
  - Wrong technique in device usage process [Not Recovered/Not Resolved]
  - Condition aggravated [Recovered/Resolved]

NARRATIVE: CASE EVENT DATE: 2016
